FAERS Safety Report 5170457-X (Version None)
Quarter: 2006Q4

REPORT INFORMATION
  Report Type: 
  Country: None (occurrence: None)
  Receive Date: 20061204
  Receipt Date: 20061120
  Transmission Date: 20070319
  Serious: Yes (Hospitalization)
  Sender: FDA-Public Use
  Company Number: S06-UKI-04995-01

PATIENT
  Age: 22 Year
  Sex: Male

DRUGS (4)
  1. ESCITALOPRAM OXALATE [Suspect]
     Indication: DEPRESSION
     Dates: start: 20060901, end: 20061113
  2. ARIPIPRAZOLE [Suspect]
     Dates: start: 20060601, end: 20060801
  3. LORAZEPAM [Concomitant]
  4. LACTULOSE [Concomitant]

REACTIONS (2)
  - NEUROLEPTIC MALIGNANT SYNDROME [None]
  - SCHIZOAFFECTIVE DISORDER [None]
